FAERS Safety Report 4635830-4 (Version None)
Quarter: 2005Q2

REPORT INFORMATION
  Report Type: 
  Country: None (occurrence: None)
  Receive Date: 20050413
  Receipt Date: 20050330
  Transmission Date: 20051028
  Serious: Yes (Death)
  Sender: FDA-Public Use
  Company Number: FABR-11068

PATIENT
  Age: 46 Year
  Sex: Male
  Weight: 62.6 kg

DRUGS (8)
  1. FABRAZYME [Suspect]
     Indication: FABRY'S DISEASE
     Dates: start: 20050216, end: 20050316
  2. ULTRAM [Concomitant]
  3. ZOLOFT [Concomitant]
  4. PHOSLO [Concomitant]
  5. PLAVIX [Concomitant]
  6. VICODIN [Concomitant]
  7. REGLAN [Concomitant]
  8. HYDROCODONE BITARTRATE [Concomitant]

REACTIONS (1)
  - RENAL FAILURE [None]
